FAERS Safety Report 8211180-4 (Version None)
Quarter: 2012Q1

REPORT INFORMATION
  Report Type: 
  Country: None (occurrence: None)
  Receive Date: 20120315
  Receipt Date: 20120308
  Transmission Date: 20120608
  Serious: Yes (Death)
  Sender: FDA-Public Use
  Company Number: ZA-GENZYME-MOZO-1000670

PATIENT
  Age: 39 Year
  Sex: Female

DRUGS (2)
  1. MOZOBIL [Suspect]
     Indication: HAEMATOPOIETIC STEM CELL MOBILISATION
     Dosage: 20 MG, QD
     Route: 058
  2. MOZOBIL [Suspect]
     Indication: NON-HODGKIN'S LYMPHOMA

REACTIONS (1)
  - SEPSIS [None]
